FAERS Safety Report 6871142-6 (Version None)
Quarter: 2010Q3

REPORT INFORMATION
  Report Type: 
  Country: None (occurrence: None)
  Receive Date: 20100723
  Receipt Date: 20100712
  Transmission Date: 20110219
  Serious: Yes (Hospitalization)
  Sender: FDA-Public Use
  Company Number: FR-ROCHE-673798

PATIENT
  Sex: Female
  Weight: 42 kg

DRUGS (11)
  1. METHOXY POLYETHYLENE GLYCOL-EPOETIN BETA [Suspect]
     Dosage: FORM: PFS.  LAST DOSE ON 20 OCTOBER 2009.
     Route: 042
     Dates: start: 20090922
  2. OMEPRAZOLE [Concomitant]
     Dosage: TOTAL DAILY DOSE: 1 CP.
  3. LAMICTAL [Concomitant]
     Dosage: STRENGTH 200 MG.  TOTAL DAILY DOSE: 2 CP.
     Dates: start: 20090616
  4. LAMICTAL [Concomitant]
     Dosage: TOTAL DAILY DOSE: 1 CP. STRENGTH: 100 MG
     Dates: start: 20090820
  5. CINACALCET HYDROCHLORIDE [Concomitant]
     Dosage: TOTAL DAILY DOSE: 2 CP
     Dates: start: 20090818
  6. UN ALFA [Concomitant]
     Dosage: TOTAL DAILY DOSE: 1 CYNES.
     Dates: start: 20081216
  7. BROMAZEPAM [Concomitant]
     Dosage: DRUG REPORTED: BROMAZEPRAM.
     Dates: start: 20071208
  8. DEPAKENE [Concomitant]
     Dates: start: 20070814
  9. LASIX [Concomitant]
     Dates: start: 20070710
  10. SPECIAFOLDINE [Concomitant]
     Dates: start: 20061204
  11. RIVOTRIL [Concomitant]
     Dates: start: 20070626

REACTIONS (1)
  - INTRACRANIAL ANEURYSM [None]
